FAERS Safety Report 4373800-4 (Version None)
Quarter: 2004Q2

REPORT INFORMATION
  Report Type: 
  Country: None (occurrence: None)
  Receive Date: 20040603
  Receipt Date: 20030529
  Transmission Date: 20050107
  Serious: Yes (Disabling)
  Sender: FDA-Public Use
  Company Number: A03200301179

PATIENT
  Age: 66 Year
  Sex: Female
  Weight: 48.9885 kg

DRUGS (8)
  1. PLAQUENIL [Suspect]
     Indication: RHEUMATOID ARTHRITIS
     Dosage: 200 MG QD - ORAL
     Route: 048
     Dates: start: 19920101
  2. CELECOXIB [Concomitant]
  3. CALCIUM WITH VITAMIN D [Concomitant]
  4. FOLIC ACID [Concomitant]
  5. ESTRADIOL AND NORETHINDRONE [Concomitant]
  6. LEFLUNOMIDE [Concomitant]
  7. METHOTREXATE [Concomitant]
  8. ACETAMINOPHEN [Concomitant]

REACTIONS (1)
  - HYPOACUSIS [None]
